FAERS Safety Report 8276112-1 (Version None)
Quarter: 2012Q2

REPORT INFORMATION
  Report Type: 
  Country: None (occurrence: None)
  Receive Date: 20120406
  Receipt Date: 20120327
  Transmission Date: 20120825
  Serious: Yes (Hospitalization, Other)
  Sender: FDA-Public Use
  Company Number: US-1191350

PATIENT
  Age: 47 Year
  Sex: Male
  Weight: 81.6475 kg

DRUGS (7)
  1. TOBRAMYCIN AND DEXAMETHASONE [Suspect]
     Indication: EYE INJURY
     Dosage: 1 GTT TID  OD OPHTHALMIC
     Route: 047
     Dates: start: 20120316
  2. PREVACID [Concomitant]
  3. PROZAC [Concomitant]
  4. NEXIUM [Concomitant]
  5. PERCOCET [Concomitant]
  6. PROMETHAZINE [Concomitant]
  7. LITHIUM CARBONATE [Concomitant]

REACTIONS (10)
  - DRUG WITHDRAWAL SYNDROME [None]
  - SUBSTANCE USE [None]
  - PNEUMONIA [None]
  - FALL [None]
  - DRUG HYPERSENSITIVITY [None]
  - REMOVAL OF FOREIGN BODY FROM NOSE [None]
  - TRANSMISSION OF AN INFECTIOUS AGENT VIA A MEDICINAL PRODUCT [None]
  - CONVULSION [None]
  - EYE IRRITATION [None]
  - EYE SWELLING [None]
